FAERS Safety Report 11208138 (Version 1)
Quarter: 2015Q2

REPORT INFORMATION
  Report Type: Spontaneous
  Country: US (occurrence: None)
  Receive Date: 20150619
  Receipt Date: 20150619
  Transmission Date: 20150821
  Serious: Yes (Hospitalization)
  Sender: FDA-Public Use
  Company Number: None

PATIENT
  Age: 75 Year
  Sex: Male
  Weight: 78.9 kg

DRUGS (15)
  1. HUMALOG [Suspect]
     Active Substance: INSULIN LISPRO
     Indication: DIABETES MELLITUS
     Dosage: DATE OF USE: CHRONIC??SSI
  2. PROTONIX [Concomitant]
     Active Substance: PANTOPRAZOLE SODIUM
  3. HOME MEDS [Concomitant]
  4. ALPRAZOLAM. [Concomitant]
     Active Substance: ALPRAZOLAM
  5. XARELTO [Concomitant]
     Active Substance: RIVAROXABAN
  6. NORVASC [Suspect]
     Active Substance: AMLODIPINE BESYLATE
  7. DELTASONE [Concomitant]
     Active Substance: PREDNISONE
  8. SPIRIVA [Concomitant]
     Active Substance: TIOTROPIUM BROMIDE MONOHYDRATE
  9. ASA [Concomitant]
     Active Substance: ASPIRIN
  10. VASOTEC [Concomitant]
     Active Substance: ENALAPRIL MALEATE
  11. APRESOLINE HYDROCHLORIDE [Concomitant]
     Active Substance: HYDRALAZINE HYDROCHLORIDE
  12. IMUR [Concomitant]
  13. BETAPACE [Concomitant]
     Active Substance: SOTALOL HYDROCHLORIDE
  14. NPH INSULIN [Suspect]
     Active Substance: INSULIN BEEF
     Indication: DIABETES MELLITUS
     Dosage: DATES OF USE: CHRONIC?12 UNITS BID WITH MEALS
     Route: 058
  15. NTG [Concomitant]
     Active Substance: NITROGLYCERIN

REACTIONS (2)
  - Hypoglycaemia unawareness [None]
  - Encephalopathy [None]

NARRATIVE: CASE EVENT DATE: 20140728
